FAERS Safety Report 8838970 (Version 1)
Quarter: 2012Q4

REPORT INFORMATION
  Report Type: Spontaneous
  Country: US (occurrence: None)
  Receive Date: 20121011
  Receipt Date: 20121011
  Transmission Date: 20130627
  Serious: Yes (Death)
  Sender: FDA-Public Use
  Company Number: None

PATIENT
  Sex: Male
  Weight: 70.31 kg

DRUGS (1)
  1. PRADAXA [Suspect]
     Indication: ATRIAL FIBRILLATION

REACTIONS (12)
  - Haemoglobin decreased [None]
  - Haemorrhage [None]
  - Abdominal pain upper [None]
  - Diarrhoea [None]
  - Constipation [None]
  - Renal failure [None]
  - Contusion [None]
  - Arthralgia [None]
  - Fall [None]
  - Dizziness [None]
  - Dizziness [None]
  - Joint swelling [None]
